FAERS Safety Report 23534531 (Version 3)
Quarter: 2024Q1

REPORT INFORMATION
  Report Type: Spontaneous
  Country: PL (occurrence: PL)
  Receive Date: 20240217
  Receipt Date: 20240313
  Transmission Date: 20240410
  Serious: Yes (Life-Threatening, Hospitalization, Disabling, Other)
  Sender: FDA-Public Use
  Company Number: PL-002147023-NVSC2020PL162992

PATIENT
  Age: 32 Year
  Sex: Male

DRUGS (21)
  1. CYPROHEPTADINE [Concomitant]
     Active Substance: CYPROHEPTADINE
     Indication: Serotonin syndrome
     Dosage: UNK
     Route: 065
  2. CHLORPHENIRAMINE [Interacting]
     Active Substance: CHLORPHENIRAMINE
     Indication: Upper respiratory tract infection
     Dosage: UNK
     Route: 065
  3. CHLORPHENIRAMINE [Interacting]
     Active Substance: CHLORPHENIRAMINE
     Indication: Viral infection
  4. DEXTROMETHORPHAN HYDROBROMIDE [Interacting]
     Active Substance: DEXTROMETHORPHAN HYDROBROMIDE
     Indication: Cough
     Dosage: UNK
     Route: 065
  5. DEXTROMETHORPHAN HYDROBROMIDE [Interacting]
     Active Substance: DEXTROMETHORPHAN HYDROBROMIDE
     Indication: Antitussive therapy
  6. ESCITALOPRAM OXALATE [Interacting]
     Active Substance: ESCITALOPRAM OXALATE
     Indication: Depression
     Dosage: 10 MG, QD, IN THE MORNING
     Route: 065
  7. ESOMEPRAZOLE [Interacting]
     Active Substance: ESOMEPRAZOLE
     Indication: Abdominal pain
     Dosage: 40 MG, QD
     Route: 065
  8. ESOMEPRAZOLE [Interacting]
     Active Substance: ESOMEPRAZOLE
     Dosage: UNK
     Route: 065
  9. METAMIZOLE [Interacting]
     Active Substance: METAMIZOLE
     Indication: Pyrexia
     Dosage: UNK
     Route: 065
  10. METAMIZOLE [Interacting]
     Active Substance: METAMIZOLE
     Indication: Viral infection
  11. ACETAMINOPHEN [Interacting]
     Active Substance: ACETAMINOPHEN
     Indication: Upper respiratory tract infection
     Dosage: UNK
     Route: 065
  12. ACETAMINOPHEN [Interacting]
     Active Substance: ACETAMINOPHEN
     Indication: Viral infection
  13. PERAZINE [Interacting]
     Active Substance: PERAZINE
     Dosage: 50 MG, QD AT BEDTIME
     Route: 065
  14. PERAZINE [Interacting]
     Active Substance: PERAZINE
     Indication: Sleep disorder
     Dosage: 50 MG, QD,  IN THE EVENING
     Route: 065
  15. PROMETHAZINE HYDROCHLORIDE [Interacting]
     Active Substance: PROMETHAZINE HYDROCHLORIDE
     Indication: Cough
     Dosage: 50 MG, TID (3/DAY)
     Route: 065
  16. PROMETHAZINE HYDROCHLORIDE [Interacting]
     Active Substance: PROMETHAZINE HYDROCHLORIDE
     Indication: Antitussive therapy
  17. PROMETHAZINE [Interacting]
     Active Substance: PROMETHAZINE HYDROCHLORIDE
     Indication: Viral infection
     Dosage: 150 MG, QD
     Route: 065
  18. PROMETHAZINE [Interacting]
     Active Substance: PROMETHAZINE HYDROCHLORIDE
     Indication: Cough
     Dosage: 50 MG, TID
     Route: 065
  19. PSEUDOEPHEDRINE [Interacting]
     Active Substance: PSEUDOEPHEDRINE
     Indication: Upper respiratory tract infection
     Dosage: UNK
     Route: 065
  20. PSEUDOEPHEDRINE [Interacting]
     Active Substance: PSEUDOEPHEDRINE
     Indication: Viral infection
  21. PSEUDOEPHEDRINE HYDROCHLORIDE [Interacting]
     Active Substance: PSEUDOEPHEDRINE HYDROCHLORIDE
     Indication: Upper respiratory tract infection
     Dosage: UNK
     Route: 065

REACTIONS (22)
  - Pyrexia [Recovered/Resolved]
  - Drug interaction [Recovered/Resolved]
  - Serotonin syndrome [Recovered/Resolved]
  - Abdominal pain upper [Recovered/Resolved]
  - Upper respiratory tract infection [Recovered/Resolved]
  - Labelled drug-drug interaction medication error [Recovered/Resolved]
  - Clonus [Recovered/Resolved]
  - Diarrhoea [Recovered/Resolved]
  - Body temperature increased [Recovered/Resolved]
  - Respiratory rate increased [Recovered/Resolved]
  - Restless legs syndrome [Recovered/Resolved]
  - Sedation [Recovered/Resolved]
  - Hypersomnia [Recovered/Resolved]
  - Medication error [Not Recovered/Not Resolved]
  - Drug ineffective [Unknown]
  - Hyperhidrosis [Recovered/Resolved]
  - Cough [Recovering/Resolving]
  - Restlessness [Recovered/Resolved]
  - Nasal congestion [Recovering/Resolving]
  - Condition aggravated [Recovered/Resolved]
  - Abdominal pain [Recovered/Resolved]
  - Product use in unapproved indication [Unknown]
